FAERS Safety Report 19764753 (Version 2)
Quarter: 2021Q3

REPORT INFORMATION
  Report Type: Spontaneous
  Country: SA (occurrence: SA)
  Receive Date: 20210830
  Receipt Date: 20210930
  Transmission Date: 20211014
  Serious: Yes (Other)
  Sender: FDA-Public Use
  Company Number: NVSC2021SA194350

PATIENT

DRUGS (2)
  1. FLUDARABINE PHOSPHATE. [Suspect]
     Active Substance: FLUDARABINE PHOSPHATE
     Indication: ACUTE MYELOID LEUKAEMIA
     Dosage: 30 MG/M2, IN 100 ML NS DAILY OVER 30 MIN (STARTING AT DAY 1 TO 5)
     Route: 042
  2. CYTARABINE. [Suspect]
     Active Substance: CYTARABINE
     Indication: ACUTE MYELOID LEUKAEMIA
     Dosage: 2000 MG/M2 IN 100 ML NS DAILY OVER 4H, ON DAYS 1 TO 5 (4 H AFTER COMPLETION OF FLUDARABINE INFUSION)
     Route: 042

REACTIONS (12)
  - Febrile neutropenia [Unknown]
  - Neutropenia [Unknown]
  - Renal tubular necrosis [Unknown]
  - Product use in unapproved indication [Unknown]
  - Acute kidney injury [Unknown]
  - Thrombocytopenia [Unknown]
  - Seizure [Unknown]
  - Staphylococcal bacteraemia [Unknown]
  - Renal tubular acidosis [Unknown]
  - Nausea [Unknown]
  - Cerebral microhaemorrhage [Unknown]
  - Transaminases increased [Unknown]
